FAERS Safety Report 9615912 (Version 1)
Quarter: 2013Q4

REPORT INFORMATION
  Report Type: Spontaneous
  Country: US (occurrence: None)
  Receive Date: 20131010
  Receipt Date: 20131010
  Transmission Date: 20140711
  Serious: No
  Sender: FDA-Public Use
  Company Number: None

PATIENT
  Age: 62 Year
  Sex: Female
  Weight: 74.84 kg

DRUGS (1)
  1. TAMIFLU [Suspect]
     Indication: INFLUENZA
     Route: 048
     Dates: start: 20131001, end: 20131006

REACTIONS (6)
  - Insomnia [None]
  - Dyspnoea [None]
  - Cough [None]
  - Headache [None]
  - Breast tenderness [None]
  - Feeling abnormal [None]
